FAERS Safety Report 10038342 (Version 2)
Quarter: 2014Q1

REPORT INFORMATION
  Report Type: Spontaneous
  Country: GB (occurrence: GB)
  Receive Date: 20140326
  Receipt Date: 20140326
  Transmission Date: 20141002
  Serious: Yes (Other)
  Sender: FDA-Public Use
  Company Number: GB-PFIZER INC-2014032829

PATIENT
  Age: 28 Year
  Sex: Female
  Weight: 48 kg

DRUGS (5)
  1. VORICONAZOLE [Suspect]
     Indication: ASPERGILLUS INFECTION
     Dosage: 150 MG, 2X/DAY
     Route: 048
     Dates: start: 20140116
  2. VORICONAZOLE [Interacting]
     Dosage: 50 MG, 2X/DAY
  3. AMINOPHYLLINE [Interacting]
     Dosage: 220 MG, 2X/DAY
  4. PHYLLOCONTIN [Concomitant]
     Indication: RESPIRATORY DISORDER
     Dosage: 225 MG, UNK
     Route: 048
     Dates: start: 20131221, end: 20140128
  5. TACROLIMUS [Concomitant]

REACTIONS (2)
  - Drug interaction [Unknown]
  - Drug level increased [Unknown]
